FAERS Safety Report 8380348-9 (Version None)
Quarter: 2012Q2

REPORT INFORMATION
  Report Type: 
  Country: None (occurrence: None)
  Receive Date: 20120522
  Receipt Date: 20110823
  Transmission Date: 20120825
  Serious: Yes (Other)
  Sender: FDA-Public Use
  Company Number: 2011-07514

PATIENT
  Age: 73 Year
  Sex: Male

DRUGS (13)
  1. ZOCOR [Concomitant]
  2. THERACYS [Suspect]
     Indication: BLADDER CANCER
     Dosage: 1/10, I.VES.
     Dates: start: 20110805, end: 20110812
  3. INTERFERON [Suspect]
     Dates: start: 20110607, end: 20110812
  4. THERACYS [Suspect]
     Indication: BLADDER CANCER
     Dosage: 1/3, I.VES.
     Dates: start: 20100101
  5. TRICOR [Concomitant]
  6. FISH OIL [Concomitant]
  7. GLUCOSAMINE [Concomitant]
  8. THERACYS [Suspect]
     Indication: BLADDER CANCER
     Dosage: 1/3, I.VES.
     Dates: start: 20101229
  9. THERACYS [Suspect]
     Indication: BLADDER CANCER
     Dosage: 1/3, I.VES.
  10. WARFARIN SODIUM [Concomitant]
  11. THERACYS [Suspect]
     Indication: BLADDER CANCER
     Dosage: 1/3 DOSE DECREASED TO 1/10
     Dates: start: 20110607, end: 20110727
  12. ASPIRIN [Concomitant]
  13. THERACYS [Suspect]
     Indication: BLADDER CANCER
     Dosage: 1/3, I.VES.
     Dates: start: 20100416

REACTIONS (4)
  - MICTURITION URGENCY [None]
  - HAEMATURIA [None]
  - FUNGAL INFECTION [None]
  - DYSURIA [None]
